FAERS Safety Report 8033292-0 (Version None)
Quarter: 2011Q4

REPORT INFORMATION
  Report Type: 
  Country: None (occurrence: None)
  Receive Date: 20111202
  Receipt Date: 20110421
  Transmission Date: 20120403
  Serious: Yes (Disabling)
  Sender: FDA-Public Use
  Company Number: WAES 1104USA03261

PATIENT
  Sex: Female

DRUGS (3)
  1. FOSAMAX [Suspect]
     Indication: OSTEOPOROSIS
     Dosage: UNK/UNK/PO
     Route: 048
     Dates: start: 20070101
  2. FOSAMAX [Suspect]
     Indication: OSTEOPENIA
     Dosage: UNK/UNK/PO
     Route: 048
     Dates: start: 20070101
  3. FOSAMAX [Suspect]
     Indication: PRODUCT USED FOR UNKNOWN INDICATION
     Dosage: UNK/UNK/PO
     Route: 048
     Dates: start: 20080201

REACTIONS (2)
  - OSTEONECROSIS OF JAW [None]
  - ADVERSE EVENT [None]
